FAERS Safety Report 4531865-0 (Version None)
Quarter: 2004Q4

REPORT INFORMATION
  Report Type: 
  Country: None (occurrence: None)
  Receive Date: 20041220
  Receipt Date: 20041206
  Transmission Date: 20050328
  Serious: Yes (Other)
  Sender: FDA-Public Use
  Company Number: JP-JNJFOC-20041203222

PATIENT
  Age: 78 Year
  Sex: Female

DRUGS (2)
  1. DUROTEP [Suspect]
     Route: 062
     Dates: start: 20041101, end: 20041101
  2. DUROTEP [Suspect]
     Indication: CANCER PAIN
     Route: 062
     Dates: start: 20041101, end: 20041101

REACTIONS (1)
  - DELIRIUM [None]
